FAERS Safety Report 10930951 (Version 1)
Quarter: 2015Q1

REPORT INFORMATION
  Report Type: Spontaneous
  Country: US (occurrence: US)
  Receive Date: 20150319
  Receipt Date: 20150319
  Transmission Date: 20150721
  Serious: No
  Sender: FDA-Public Use
  Company Number: US-SA-2014SA050954

PATIENT
  Age: 66 Year
  Sex: Male

DRUGS (16)
  1. LEUKINE [Suspect]
     Active Substance: SARGRAMOSTIM
     Indication: PROSTATE CANCER
     Dosage: LOT NUMBER IS EITHER B20433 OR 820433 AND EXPIRATION DATE IS 30/APR/2016
     Route: 058
     Dates: start: 20140326
  2. HYDROCORTISONE. [Concomitant]
     Active Substance: HYDROCORTISONE
     Indication: PROSTATE CANCER
     Dosage: ONE 20 MG TABLET IN MORNING AND HALF TABLET ORALLY DAILY IN EVENING
     Route: 048
  3. WARFARIN [Concomitant]
     Active Substance: WARFARIN
     Dosage: DINNER
     Route: 048
  4. VITAMIN D [Concomitant]
     Active Substance: CHOLECALCIFEROL
     Route: 048
  5. LYCOPENE [Concomitant]
     Active Substance: LYCOPENE
     Route: 048
  6. METFORMIN [Concomitant]
     Active Substance: METFORMIN HYDROCHLORIDE
     Dosage: BREAKFAST
     Route: 048
  7. URSODIOL. [Concomitant]
     Active Substance: URSODIOL
     Dosage: BREAKFAST AND DINNER
     Route: 048
  8. LOSARTAN POTASSIUM. [Concomitant]
     Active Substance: LOSARTAN POTASSIUM
     Dosage: BREAKFAST AND DINNER
     Route: 048
  9. ALL OTHER THERAPEUTIC PRODUCTS [Concomitant]
     Active Substance: UNSPECIFIED INGREDIENT
     Dosage: BREAKFAST AND DINNER
     Route: 048
  10. KETOCONAZOLE. [Concomitant]
     Active Substance: KETOCONAZOLE
     Indication: PROSTATE CANCER
     Dosage: AT 7 AM, 3 PM, 11 PM
     Route: 048
  11. AVODART [Concomitant]
     Active Substance: DUTASTERIDE
     Dosage: DNNER
     Route: 048
  12. LUPRON [Concomitant]
     Active Substance: LEUPROLIDE ACETATE
     Dosage: EXTENDED RELEASE INJECTION EVERY 12 WEEKS
     Dates: start: 20140421
  13. CRESTOR [Concomitant]
     Active Substance: ROSUVASTATIN CALCIUM
     Route: 048
  14. CURCUMA LONGA RHIZOME [Concomitant]
     Dosage: BREAKFAST AND DINNER
     Route: 048
  15. LEUKINE [Suspect]
     Active Substance: SARGRAMOSTIM
     Indication: PROSTATE CANCER
     Dosage: LOT NUMBER IS EITHER B20433 OR 820433 AND EXPIRATION DATE IS 30/APR/2016
     Route: 058
     Dates: start: 20140326
  16. LECITHIN [Concomitant]
     Active Substance: LECITHIN
     Dosage: TAKEN WITH CURCUMIN DURING BREAKFAST AND DINNER
     Route: 048

REACTIONS (2)
  - Skin reaction [Not Recovered/Not Resolved]
  - Oedema peripheral [Not Recovered/Not Resolved]

NARRATIVE: CASE EVENT DATE: 20140413
